FAERS Safety Report 6676304-9 (Version None)
Quarter: 2010Q1

REPORT INFORMATION
  Report Type: 
  Country: None (occurrence: None)
  Receive Date: 20100331
  Receipt Date: 20090616
  Transmission Date: 20100710
  Serious: Yes (Other)
  Sender: FDA-Public Use
  Company Number: 2009221482

PATIENT
  Age: 47 Year
  Sex: Female
  Weight: 55.3 kg

DRUGS (9)
  1. SUTENT [Suspect]
     Indication: NEUROENDOCRINE CARCINOMA
     Dosage: 50 MG, 1X/DAY
     Dates: start: 20071101
  2. LOVENOX [Concomitant]
  3. LEVOXYL [Concomitant]
  4. FLORINEF [Concomitant]
  5. OMEPRAZOLE [Concomitant]
  6. PREDNISONE TAB [Concomitant]
  7. LEXAPRO [Concomitant]
  8. HYDROCODONE (HYDROCODONE) [Concomitant]
  9. CHLORPHENIRAMINE TAB [Concomitant]

REACTIONS (7)
  - ASTHENIA [None]
  - DEHYDRATION [None]
  - DIARRHOEA [None]
  - DRUG INTOLERANCE [None]
  - PANCYTOPENIA [None]
  - WEIGHT DECREASED [None]
  - YELLOW SKIN [None]
